FAERS Safety Report 21884873 (Version 1)
Quarter: 2023Q1

REPORT INFORMATION
  Report Type: Spontaneous
  Country: US (occurrence: US)
  Receive Date: 20230119
  Receipt Date: 20230119
  Transmission Date: 20230418
  Serious: Yes (Death, Other)
  Sender: FDA-Public Use
  Company Number: US-PFIZER INC-PV202300011156

PATIENT

DRUGS (1)
  1. METHOTREXATE SODIUM [Suspect]
     Active Substance: METHOTREXATE SODIUM
     Indication: Ependymoma malignant
     Dosage: TOTAL OF 965 MG OF INTRAVENTRICULARLY INSTILLED

REACTIONS (6)
  - Toxicity to various agents [Fatal]
  - Lethargy [Unknown]
  - Dysarthria [Unknown]
  - Ataxia [Unknown]
  - Headache [Unknown]
  - Off label use [Unknown]
